FAERS Safety Report 5373548-3 (Version None)
Quarter: 2007Q2

REPORT INFORMATION
  Report Type: 
  Country: None (occurrence: None)
  Receive Date: 20070628
  Receipt Date: 20070626
  Transmission Date: 20071010
  Serious: Yes (Hospitalization)
  Sender: FDA-Public Use
  Company Number: B0475985A

PATIENT
  Age: 55 Year
  Sex: Male
  Weight: 95 kg

DRUGS (5)
  1. GW679769 [Suspect]
     Route: 048
     Dates: start: 20070529, end: 20070529
  2. ZOFRAN [Suspect]
     Dosage: 32MG CYCLIC
     Route: 042
     Dates: start: 20070529, end: 20070529
  3. DEXAMETHASONE 0.5MG TAB [Suspect]
     Route: 048
     Dates: start: 20070530, end: 20070601
  4. GEMCITABINE HCL [Concomitant]
     Indication: NON-SMALL CELL LUNG CANCER
  5. CISPLATIN [Concomitant]
     Indication: NON-SMALL CELL LUNG CANCER

REACTIONS (1)
  - DEEP VEIN THROMBOSIS [None]
